FAERS Safety Report 10412809 (Version 1)
Quarter: 2014Q3

REPORT INFORMATION
  Report Type: Spontaneous
  Country: US (occurrence: None)
  Receive Date: 20140825
  Receipt Date: 20140825
  Transmission Date: 20150326
  Serious: Yes (Other)
  Sender: FDA-Public Use
  Company Number: 2009S1007628

PATIENT
  Age: 58 Year
  Sex: Female

DRUGS (4)
  1. AVAPRO [Concomitant]
     Active Substance: IRBESARTAN
  2. LIDODERM [Concomitant]
     Active Substance: LIDOCAINE
  3. PHOSPHO-SODA [Suspect]
     Active Substance: SODIUM PHOSPHATE, DIBASIC\SODIUM PHOSPHATE, MONOBASIC
     Indication: COLONOSCOPY
     Route: 048
     Dates: start: 20070327, end: 20070328
  4. NEURONTIN [Concomitant]
     Active Substance: GABAPENTIN

REACTIONS (12)
  - Acute phosphate nephropathy [None]
  - Tubulointerstitial nephritis [None]
  - Vomiting [None]
  - Hypertensive nephropathy [None]
  - Fatigue [None]
  - Renal failure chronic [None]
  - Vitamin D deficiency [None]
  - Anaemia [None]
  - Renal failure [None]
  - Diarrhoea [None]
  - Normochromic normocytic anaemia [None]
  - Dizziness [None]

NARRATIVE: CASE EVENT DATE: 200801
